FAERS Safety Report 5924692-0 (Version None)
Quarter: 2008Q4

REPORT INFORMATION
  Report Type: 
  Country: None (occurrence: None)
  Receive Date: 20081015
  Receipt Date: 20081001
  Transmission Date: 20090506
  Serious: Yes (Other)
  Sender: FDA-Public Use
  Company Number: POMP-1000253

PATIENT
  Age: 6 Year
  Sex: Male
  Weight: 23 kg

DRUGS (3)
  1. MYOZYME [Suspect]
     Indication: GLYCOGEN STORAGE DISEASE TYPE II
     Dosage: 22 MG/KG, Q2W, INTRAVENOUS
     Route: 042
     Dates: start: 20051224
  2. FLUTICASONE PROPIONATE [Concomitant]
  3. SALBUTAMOL (SALBUTAMOL) [Concomitant]

REACTIONS (5)
  - ANTIBODY TEST POSITIVE [None]
  - APPENDICITIS [None]
  - MUSCLE DISORDER [None]
  - PNEUMONIA [None]
  - RESPIRATORY DISORDER [None]
